FAERS Safety Report 4887481-4 (Version None)
Quarter: 2006Q1

REPORT INFORMATION
  Report Type: 
  Country: None (occurrence: None)
  Receive Date: 20060118
  Receipt Date: 20060103
  Transmission Date: 20060701
  Serious: No
  Sender: FDA-Public Use
  Company Number: GB200511002341

PATIENT
  Age: 18 Year
  Sex: Male

DRUGS (5)
  1. ZYPREXA [Suspect]
     Dosage: 20 MG, DAILY (1/D), ORAL
     Route: 048
     Dates: start: 20051103, end: 20051107
  2. QUETIAPINE FUMARATE [Concomitant]
  3. CITALOPRAM (CITALOPRAM) [Concomitant]
  4. CLOZAPINE [Concomitant]
  5. ZOPLICONE (ZOPICLONE) [Concomitant]

REACTIONS (2)
  - NEUTROPENIA [None]
  - WHITE BLOOD CELL COUNT DECREASED [None]
